FAERS Safety Report 5599816-8 (Version None)
Quarter: 2008Q1

REPORT INFORMATION
  Report Type: 
  Country: None (occurrence: None)
  Receive Date: 20080118
  Receipt Date: 20080107
  Transmission Date: 20080703
  Serious: Yes (Death, Hospitalization)
  Sender: FDA-Public Use
  Company Number: 2008AP000034

PATIENT
  Age: 75 Year
  Sex: Female

DRUGS (8)
  1. SERTRALINE HYDROCHLORIDE [Suspect]
     Indication: BIPOLAR DISORDER
     Dosage: 50 MG; BID
  2. SERTRALINE HYDROCHLORIDE [Suspect]
     Indication: DEPRESSION
     Dosage: 50 MG; BID
  3. CARBAMAZEPINE [Suspect]
     Indication: BIPOLAR DISORDER
     Dosage: 200 MG; BID
  4. CARBAMAZEPINE [Suspect]
     Indication: DEPRESSION
     Dosage: 200 MG; BID
  5. PHENOTHIAZINE (PHENOTHIAZINE) [Suspect]
     Indication: BIPOLAR DISORDER
     Dosage: 5 MG; TID
  6. PHENOTHIAZINE (PHENOTHIAZINE) [Suspect]
     Indication: DEPRESSION
     Dosage: 5 MG; TID
  7. VENLAFAXINE HCL [Concomitant]
  8. OLANZAPINE [Concomitant]

REACTIONS (8)
  - ACUTE RESPIRATORY DISTRESS SYNDROME [None]
  - HYPOTENSION [None]
  - LUNG INJURY [None]
  - MULTI-ORGAN FAILURE [None]
  - NON-CARDIOGENIC PULMONARY OEDEMA [None]
  - PNEUMONIA [None]
  - RESPIRATORY FAILURE [None]
  - TREATMENT FAILURE [None]
